FAERS Safety Report 19132080 (Version 1)
Quarter: 2021Q2

REPORT INFORMATION
  Report Type: Spontaneous
  Country: GB (occurrence: GB)
  Receive Date: 20210414
  Receipt Date: 20210414
  Transmission Date: 20210717
  Serious: No
  Sender: FDA-Public Use
  Company Number: GB-35507-2021-04484

PATIENT
  Age: 44 Year
  Sex: Female

DRUGS (2)
  1. SERTRALINE 50 MG TABLETS [Suspect]
     Active Substance: SERTRALINE HYDROCHLORIDE
     Indication: PRODUCT USED FOR UNKNOWN INDICATION
     Dosage: UNK
     Route: 065
  2. SERTRALINE 50 MG TABLETS [Suspect]
     Active Substance: SERTRALINE HYDROCHLORIDE
     Dosage: UNK (SHE TOOK ONLY 1 TABLET)
     Route: 065
     Dates: start: 202103

REACTIONS (2)
  - Eye disorder [Unknown]
  - Polyp [Unknown]

NARRATIVE: CASE EVENT DATE: 202103
